FAERS Safety Report 14022989 (Version 1)
Quarter: 2017Q3

REPORT INFORMATION
  Report Type: Spontaneous
  Country: US (occurrence: US)
  Receive Date: 20170928
  Receipt Date: 20170928
  Transmission Date: 20171128
  Serious: No
  Sender: FDA-Public Use
  Company Number: US-SA-2016SA193860

PATIENT
  Age: 55 Year
  Sex: Female

DRUGS (26)
  1. CARISOPRODOL. [Concomitant]
     Active Substance: CARISOPRODOL
  2. ABILIFY [Concomitant]
     Active Substance: ARIPIPRAZOLE
  3. BACLOFEN. [Concomitant]
     Active Substance: BACLOFEN
  4. GLIMEPIRIDE. [Concomitant]
     Active Substance: GLIMEPIRIDE
  5. SIMVASTATIN. [Concomitant]
     Active Substance: SIMVASTATIN
  6. PREDNISONE. [Concomitant]
     Active Substance: PREDNISONE
  7. ASPIRIN. [Concomitant]
     Active Substance: ASPIRIN
  8. JANUVIA [Concomitant]
     Active Substance: SITAGLIPTIN PHOSPHATE
  9. AUBAGIO [Suspect]
     Active Substance: TERIFLUNOMIDE
     Indication: MULTIPLE SCLEROSIS
     Route: 048
     Dates: start: 2016
  10. LYRICA [Concomitant]
     Active Substance: PREGABALIN
  11. HYDROCHLOROTHIAZIDE/LISINOPRIL [Concomitant]
  12. METFORMIN HYDROCHLORIDE. [Concomitant]
     Active Substance: METFORMIN HYDROCHLORIDE
  13. AMLODIPINE BESILATE [Concomitant]
     Active Substance: AMLODIPINE BESYLATE
  14. AUBAGIO [Suspect]
     Active Substance: TERIFLUNOMIDE
     Indication: MULTIPLE SCLEROSIS
     Route: 048
     Dates: start: 20160223
  15. ADVAIR DISKUS [Concomitant]
     Active Substance: FLUTICASONE PROPIONATE\SALMETEROL XINAFOATE
  16. VITAMIN D3 [Concomitant]
     Active Substance: CHOLECALCIFEROL
     Dosage: DOSE:10000 UNIT(S)
  17. AMPYRA [Concomitant]
     Active Substance: DALFAMPRIDINE
  18. BIOTIN [Concomitant]
     Active Substance: BIOTIN
  19. PROAIR HFA [Concomitant]
     Active Substance: ALBUTEROL SULFATE
  20. PENNSAID [Concomitant]
     Active Substance: DICLOFENAC SODIUM
  21. LINZESS [Concomitant]
     Active Substance: LINACLOTIDE
  22. DULOXETINE HYDROCHLORIDE. [Concomitant]
     Active Substance: DULOXETINE HYDROCHLORIDE
  23. MELOXICAM. [Concomitant]
     Active Substance: MELOXICAM
  24. CLONAZEPAM. [Concomitant]
     Active Substance: CLONAZEPAM
  25. ESTRADIOL. [Concomitant]
     Active Substance: ESTRADIOL
  26. CYMBALTA [Concomitant]
     Active Substance: DULOXETINE HYDROCHLORIDE

REACTIONS (4)
  - Product use issue [Unknown]
  - Pain in extremity [Not Recovered/Not Resolved]
  - Anxiety [Unknown]
  - Hypoaesthesia [Not Recovered/Not Resolved]

NARRATIVE: CASE EVENT DATE: 2016
